FAERS Safety Report 4366971-7 (Version None)
Quarter: 2004Q2

REPORT INFORMATION
  Report Type: 
  Country: None (occurrence: None)
  Receive Date: 20040524
  Receipt Date: 20040513
  Transmission Date: 20050107
  Serious: Yes (Death, Life-Threatening, Other)
  Sender: FDA-Public Use
  Company Number: 2004030444

PATIENT
  Age: 35 Year
  Sex: Male

DRUGS (6)
  1. DILANTIN [Suspect]
     Indication: CONVULSION
     Dosage: 400 MG (200 MG, BID)
     Dates: end: 20040403
  2. NEURONTIN [Suspect]
     Indication: CONVULSION
     Dosage: 3600 MG, (900 MG.QID)
     Dates: start: 20020701, end: 20040403
  3. BENZATROPINE MESILATE (BENZATROPINE MESILATE) [Concomitant]
  4. LORAZEPAM [Concomitant]
  5. THIORIDAZINE (THIORIDAZNE) [Concomitant]
  6. DIAZEPAM [Concomitant]

REACTIONS (2)
  - ANTICONVULSANT DRUG LEVEL DECREASED [None]
  - CONVULSION [None]
